FAERS Safety Report 5570998-7 (Version None)
Quarter: 2007Q4

REPORT INFORMATION
  Report Type: 
  Country: None (occurrence: None)
  Receive Date: 20071221
  Receipt Date: 20071217
  Transmission Date: 20080405
  Serious: No
  Sender: FDA-Public Use
  Company Number: US-JNJFOC-20071205094

PATIENT
  Sex: Male

DRUGS (8)
  1. INVEGA [Suspect]
     Route: 048
  2. INVEGA [Suspect]
     Route: 048
  3. INVEGA [Suspect]
     Indication: BIPOLAR DISORDER
     Route: 048
  4. LAMICTAL [Concomitant]
  5. DEPAKOTE [Concomitant]
  6. LIPITOR [Concomitant]
  7. BENACOR [Concomitant]
  8. KLONOPIN [Concomitant]

REACTIONS (3)
  - LIPIDS INCREASED [None]
  - MANIA [None]
  - WEIGHT INCREASED [None]
